FAERS Safety Report 13079654 (Version 1)
Quarter: 2017Q1

REPORT INFORMATION
  Report Type: Spontaneous
  Country: US (occurrence: US)
  Receive Date: 20170103
  Receipt Date: 20170103
  Transmission Date: 20170428
  Serious: No
  Sender: FDA-Public Use
  Company Number: US-ASTRAZENECA-2016SF37009

PATIENT
  Age: 47 Year
  Sex: Female

DRUGS (17)
  1. MOVANTIK [Suspect]
     Active Substance: NALOXEGOL OXALATE
     Indication: CONSTIPATION
     Route: 048
  2. VITAMINS [Concomitant]
     Active Substance: VITAMINS
  3. TYLENOL WITH CODEINE [Concomitant]
     Active Substance: ACETAMINOPHEN\CODEINE PHOSPHATE
  4. PRILOCAINE AND LIDOCAINE [Concomitant]
     Route: 065
  5. NORCO [Concomitant]
     Active Substance: ACETAMINOPHEN\HYDROCODONE BITARTRATE
  6. CLARITIN [Concomitant]
     Active Substance: LORATADINE
  7. CHINESE HERBS [Concomitant]
     Active Substance: HERBALS
  8. LIDODERM [Suspect]
     Active Substance: LIDOCAINE
     Dosage: UNKNOWN
     Route: 065
  9. NEURONTIN [Concomitant]
     Active Substance: GABAPENTIN
  10. FLEXERIL [Concomitant]
     Active Substance: CYCLOBENZAPRINE HYDROCHLORIDE
  11. WHITE WILLOW [Concomitant]
     Active Substance: WHITE WILLOW
  12. SUDAFED [Concomitant]
     Active Substance: PSEUDOEPHEDRINE HYDROCHLORIDE
     Dosage: AS REQUIRED
  13. FEXOFENADINE [Concomitant]
     Active Substance: FEXOFENADINE\FEXOFENADINE HYDROCHLORIDE
  14. AMBIEN [Concomitant]
     Active Substance: ZOLPIDEM TARTRATE
  15. XANAX [Concomitant]
     Active Substance: ALPRAZOLAM
  16. TRAZODONE [Concomitant]
     Active Substance: TRAZODONE HYDROCHLORIDE
  17. IBUPROFEN. [Concomitant]
     Active Substance: IBUPROFEN

REACTIONS (3)
  - Drug withdrawal syndrome [Unknown]
  - Tachycardia [Unknown]
  - Chills [Unknown]
